FAERS Safety Report 25180623 (Version 1)
Quarter: 2025Q2

REPORT INFORMATION
  Report Type: Spontaneous
  Country: US (occurrence: None)
  Receive Date: 20250409
  Receipt Date: 20250409
  Transmission Date: 20250716
  Serious: Yes (Death)
  Sender: FDA-CTU
  Company Number: None

PATIENT
  Age: 81 Year
  Sex: Male
  Weight: 89.18 kg

DRUGS (6)
  1. ABIRATERONE [Suspect]
     Active Substance: ABIRATERONE
     Indication: Prostate cancer
     Dosage: FREQUENCY : DAILY;?
     Route: 048
     Dates: start: 20241115, end: 202504
  2. LEVOTHYROXINE [Concomitant]
     Active Substance: LEVOTHYROXINE
     Dates: end: 202504
  3. SIMVASTATIN [Concomitant]
     Active Substance: SIMVASTATIN
     Dates: end: 202504
  4. ONE TOUCH ULTRA TEST [Concomitant]
     Dates: end: 202504
  5. ONE TOUCH ULTRASOFT LANCETS [Concomitant]
     Dates: end: 202504
  6. PREDNISONE [Concomitant]
     Active Substance: PREDNISONE

REACTIONS (1)
  - Death [None]

NARRATIVE: CASE EVENT DATE: 20250401
